FAERS Safety Report 9705535 (Version 1)
Quarter: 2013Q4

REPORT INFORMATION
  Report Type: Spontaneous
  Country: US (occurrence: US)
  Receive Date: 20131122
  Receipt Date: 20131122
  Transmission Date: 20140711
  Serious: No
  Sender: FDA-Public Use
  Company Number: US-PFIZER INC-2013334089

PATIENT
  Age: 52 Year
  Sex: Female
  Weight: 126.8 kg

DRUGS (13)
  1. LYRICA [Suspect]
     Indication: FIBROMYALGIA
     Dosage: 300 MG, 2X/DAY
     Route: 048
     Dates: end: 201311
  2. LYRICA [Suspect]
     Indication: OSTEOARTHRITIS
  3. LYRICA [Suspect]
     Indication: THORACIC OUTLET SYNDROME
  4. NABUMETONE [Concomitant]
     Dosage: UNK
  5. ZONISAMIDE [Concomitant]
     Dosage: UNK
  6. DOXYCYCLINE [Concomitant]
     Dosage: UNK
  7. CYCLOBENZAPRINE [Concomitant]
     Dosage: UNK
  8. LEVOTHYROXINE [Concomitant]
     Dosage: UNK
  9. TRAMADOL ER [Concomitant]
     Dosage: UNK
  10. LEVOCETIRIZINE [Concomitant]
     Dosage: UNK
  11. ROPINIROLE [Concomitant]
     Dosage: UNK
  12. BACLOFEN [Concomitant]
     Dosage: UNK
  13. CITALOPRAM [Concomitant]
     Dosage: UNK

REACTIONS (1)
  - Pain [Unknown]
